FAERS Safety Report 5926186-5 (Version None)
Quarter: 2008Q4

REPORT INFORMATION
  Report Type: 
  Country: None (occurrence: None)
  Receive Date: 20081017
  Receipt Date: 20081003
  Transmission Date: 20090506
  Serious: Yes (Other)
  Sender: FDA-Public Use
  Company Number: 033444

PATIENT
  Age: 19 Year
  Sex: Female
  Weight: 61.2 kg

DRUGS (2)
  1. CLARAVIS [Suspect]
     Dosage: 80 MG, QD, ORAL
     Route: 048
     Dates: start: 20080321, end: 20080801
  2. ORAL CONTRACEPTIVE NOS (ORAL CONTRACEPTIVE NOS) [Concomitant]

REACTIONS (8)
  - ABDOMINAL PAIN [None]
  - ABORTION INDUCED [None]
  - DRUG EXPOSURE DURING PREGNANCY [None]
  - FLATULENCE [None]
  - INAPPROPRIATE SCHEDULE OF DRUG ADMINISTRATION [None]
  - MUCOUS STOOLS [None]
  - TREATMENT NONCOMPLIANCE [None]
  - UNINTENDED PREGNANCY [None]
